FAERS Safety Report 13587758 (Version 1)
Quarter: 2017Q2

REPORT INFORMATION
  Report Type: Spontaneous
  Country: IN (occurrence: IN)
  Receive Date: 20170526
  Receipt Date: 20170526
  Transmission Date: 20170830
  Serious: Yes (Other)
  Sender: FDA-Public Use
  Company Number: IN-CELGENEUS-IND-20170507256

PATIENT
  Age: 70 Year
  Sex: Female

DRUGS (3)
  1. AZACITIDINE INJECTABLE [Suspect]
     Active Substance: AZACITIDINE
     Indication: MYELODYSPLASTIC SYNDROME
     Dosage: 75 MILLIGRAM/SQ. METER
     Route: 058
  2. AZACITIDINE INJECTABLE [Suspect]
     Active Substance: AZACITIDINE
     Dosage: 120 MILLIGRAM
     Route: 058
  3. AZACITIDINE INJECTABLE [Suspect]
     Active Substance: AZACITIDINE
     Dosage: 120 MILLIGRAM
     Route: 058

REACTIONS (3)
  - Hyperkalaemia [Unknown]
  - Blood creatinine increased [Unknown]
  - Renal impairment [Unknown]
